FAERS Safety Report 18572172 (Version 3)
Quarter: 2020Q4

REPORT INFORMATION
  Report Type: Spontaneous
  Country: BR (occurrence: BR)
  Receive Date: 20201203
  Receipt Date: 20201222
  Transmission Date: 20210114
  Serious: Yes (Other)
  Sender: FDA-Public Use
  Company Number: BR-CELLTRION INC.-2020BR033051

PATIENT

DRUGS (6)
  1. METHOTREXATE. [Concomitant]
     Active Substance: METHOTREXATE
     Dosage: START DATE: ABOUT 30 YEARS AGO
     Route: 058
  2. RIVOTRIL [Concomitant]
     Active Substance: CLONAZEPAM
     Indication: SLEEP DISORDER
     Dosage: 4 TABLETS/DAY
     Route: 048
  3. REMSIMA [Suspect]
     Active Substance: INFLIXIMAB
     Indication: PSORIATIC ARTHROPATHY
     Dosage: EVERY 2 MONTHS (START DATE: ABOUT 2 YEARS; STOP DATE: ABOUT 4 MONTHS)
     Route: 042
  4. EPINIL [CARBAMAZEPINE] [Concomitant]
     Route: 048
  5. PSOREX [Concomitant]
     Active Substance: CLOBETASOL PROPIONATE
     Indication: PSORIASIS
  6. VENLAFAXIN [Concomitant]
     Active Substance: VENLAFAXINE HYDROCHLORIDE
     Indication: DEPRESSION
     Dosage: UNK
     Route: 048

REACTIONS (5)
  - Pain [Unknown]
  - Arthralgia [Unknown]
  - Eye infection [Recovering/Resolving]
  - Intentional dose omission [Unknown]
  - COVID-19 [Unknown]
